FAERS Safety Report 8234550-7 (Version None)
Quarter: 2012Q1

REPORT INFORMATION
  Report Type: 
  Country: None (occurrence: None)
  Receive Date: 20120326
  Receipt Date: 20120320
  Transmission Date: 20120608
  Serious: Yes (Death)
  Sender: FDA-Public Use
  Company Number: US-AMGEN-USANI2012017839

PATIENT
  Age: 56 Year
  Sex: Male

DRUGS (1)
  1. ETANERCEPT [Suspect]
     Indication: PSORIASIS
     Dosage: UNK UNK, QWK
     Route: 058
     Dates: start: 20070314, end: 20090119

REACTIONS (1)
  - DEATH [None]
